FAERS Safety Report 4347253-6 (Version None)
Quarter: 2004Q1

REPORT INFORMATION
  Report Type: 
  Country: None (occurrence: None)
  Receive Date: 20040325
  Receipt Date: 20040217
  Transmission Date: 20041129
  Serious: No
  Sender: FDA-Public Use
  Company Number: USA040157924

PATIENT
  Age: 74 Year
  Sex: Female

DRUGS (11)
  1. FORTEO [Suspect]
     Indication: OSTEOPOROSIS
     Dosage: 20 UG/DAY
     Dates: start: 20040127
  2. PREDNISONE [Concomitant]
  3. PROVENTIL [Concomitant]
  4. THEOPHYLLINE [Concomitant]
  5. FLUTICASONE PROPIONATE [Concomitant]
  6. SYNTHROID [Concomitant]
  7. NORVASC [Concomitant]
  8. DARVON [Concomitant]
  9. PROTONIX [Concomitant]
  10. VITAMIN B COMPLEX CAP [Concomitant]
  11. CLINDAMYCIN HCL [Concomitant]

REACTIONS (3)
  - DYSGEUSIA [None]
  - FATIGUE [None]
  - INCREASED UPPER AIRWAY SECRETION [None]
